FAERS Safety Report 18139613 (Version 4)
Quarter: 2021Q1

REPORT INFORMATION
  Report Type: Spontaneous
  Country: US (occurrence: US)
  Receive Date: 20200812
  Receipt Date: 20210111
  Transmission Date: 20210419
  Serious: No
  Sender: FDA-Public Use
  Company Number: US-PFIZER INC-2018500732

PATIENT
  Age: 63 Year
  Sex: Female

DRUGS (5)
  1. LYRICA [Suspect]
     Active Substance: PREGABALIN
     Dosage: 675 MG, DAILY (75 MG EACH MORNING ALONG WITH 300 MG TWICE DAILY/ TOTAL 675 MG/24H)
     Route: 048
     Dates: start: 20201119
  2. LYRICA [Suspect]
     Active Substance: PREGABALIN
     Dosage: 675 MG, DAILY (75 MG EACH MORNING AND 300 MG TWICE DAILY)
     Route: 048
     Dates: start: 20181120
  3. LYRICA [Suspect]
     Active Substance: PREGABALIN
     Dosage: 675 MG, DAILY (75 MG EACH MORNING AND 300 MG TWICE DAILY)
     Route: 048
     Dates: start: 20190423
  4. PREGABALIN. [Concomitant]
     Active Substance: PREGABALIN
     Dosage: 300 MG, 2X/DAY
     Route: 048
  5. LYRICA [Suspect]
     Active Substance: PREGABALIN
     Dosage: 675 MG DAILY (75 MG EACH MORNING AND 300 MG TWICE DAILY)
     Route: 048
     Dates: start: 20191126

REACTIONS (2)
  - Pain in extremity [Unknown]
  - Prescribed overdose [Unknown]

NARRATIVE: CASE EVENT DATE: 20181120
